FAERS Safety Report 8127210-4 (Version None)
Quarter: 2012Q1

REPORT INFORMATION
  Report Type: 
  Country: None (occurrence: None)
  Receive Date: 20120210
  Receipt Date: 20120127
  Transmission Date: 20120608
  Serious: Yes (Other)
  Sender: FDA-Public Use
  Company Number: US-RANBAXY-2012US-52384

PATIENT
  Sex: Male

DRUGS (2)
  1. ETHANOL [Interacting]
     Indication: PRODUCT USED FOR UNKNOWN INDICATION
     Route: 048
  2. LORAZEPAM [Suspect]
     Indication: PRODUCT USED FOR UNKNOWN INDICATION
     Dosage: 1MG, 3 TIMES DAILY AS REQUIRED
     Route: 065

REACTIONS (3)
  - FALL [None]
  - SUBDURAL HAEMATOMA [None]
  - POTENTIATING DRUG INTERACTION [None]
